FAERS Safety Report 14884342 (Version 1)
Quarter: 2018Q2

REPORT INFORMATION
  Report Type: Spontaneous
  Country: US (occurrence: US)
  Receive Date: 20180511
  Receipt Date: 20180511
  Transmission Date: 20180711
  Serious: No
  Sender: FDA-Public Use
  Company Number: US-TEVA-2018-US-890535

PATIENT
  Age: 64 Year
  Sex: Female

DRUGS (2)
  1. DESVENLAFAXINE SODIUM [Suspect]
     Active Substance: DESVENLAFAXINE
     Indication: DEPRESSION
     Route: 065
  2. DESVENLAFAXINE SODIUM [Suspect]
     Active Substance: DESVENLAFAXINE
     Indication: HOT FLUSH

REACTIONS (1)
  - Drug ineffective [Unknown]
